FAERS Safety Report 16229019 (Version 1)
Quarter: 2019Q2

REPORT INFORMATION
  Report Type: Spontaneous
  Country: CN (occurrence: CN)
  Receive Date: 20190423
  Receipt Date: 20190423
  Transmission Date: 20190711
  Serious: Yes (Other)
  Sender: FDA-Public Use
  Company Number: CN-GLAXOSMITHKLINE-CN2019072030

PATIENT
  Age: 77 Year
  Sex: Female
  Weight: 55 kg

DRUGS (5)
  1. DOPAMINE [Concomitant]
     Active Substance: DOPAMINE\DOPAMINE HYDROCHLORIDE
     Indication: PRODUCT USED FOR UNKNOWN INDICATION
     Dosage: UNK
     Route: 065
  2. GABAPENTIN. [Suspect]
     Active Substance: GABAPENTIN
     Indication: HEADACHE
     Dosage: 0.30 G, TID
     Route: 048
     Dates: start: 20190327, end: 20190331
  3. DICLOFENAC SODIUM. [Suspect]
     Active Substance: DICLOFENAC SODIUM
     Indication: HEADACHE
     Dosage: 75 MG, QD
     Route: 048
     Dates: start: 20190327, end: 20190331
  4. ENALAPRIL MALEATE AND FOLIC ACID TABLETS [Concomitant]
     Indication: HYPERTENSION
     Dosage: 10 MG, BID
     Route: 048
     Dates: start: 20190327, end: 20190331
  5. ACYCLOVIR. [Concomitant]
     Active Substance: ACYCLOVIR
     Indication: POST HERPETIC NEURALGIA
     Dosage: 2 DF, TID
     Route: 048
     Dates: start: 20190327, end: 20190331

REACTIONS (1)
  - Renal injury [Recovering/Resolving]

NARRATIVE: CASE EVENT DATE: 20190331
